FAERS Safety Report 25359851 (Version 1)
Quarter: 2025Q2

REPORT INFORMATION
  Report Type: Spontaneous
  Country: PT (occurrence: PT)
  Receive Date: 20250526
  Receipt Date: 20250526
  Transmission Date: 20250717
  Serious: Yes (Other)
  Sender: JOHNSON AND JOHNSON
  Company Number: PT-JNJFOC-20250524371

PATIENT
  Sex: Male

DRUGS (1)
  1. TECVAYLI [Suspect]
     Active Substance: TECLISTAMAB-CQYV
     Indication: Plasma cell myeloma
     Route: 065
     Dates: start: 202412

REACTIONS (4)
  - Haemophilus sepsis [Unknown]
  - Pneumonia [Unknown]
  - Empyema [Unknown]
  - Pleural effusion [Unknown]
